FAERS Safety Report 14315534 (Version 2)
Quarter: 2018Q4

REPORT INFORMATION
  Report Type: Spontaneous
  Country: US (occurrence: US)
  Receive Date: 20171221
  Receipt Date: 20181219
  Transmission Date: 20190204
  Serious: No
  Sender: FDA-Public Use
  Company Number: US-IMPAX LABORATORIES, INC-2017-IPXL-01597

PATIENT
  Age: 62 Year
  Sex: Female

DRUGS (2)
  1. COLESTIPOL HYDROCHLORIDE. [Suspect]
     Active Substance: COLESTIPOL HYDROCHLORIDE
     Dosage: 4 ONE GRAM TABLETS TWICE DAILY
     Route: 048
  2. COLESTIPOL HYDROCHLORIDE. [Suspect]
     Active Substance: COLESTIPOL HYDROCHLORIDE
     Indication: PRODUCT USED FOR UNKNOWN INDICATION
     Dosage: 2 COLESTIPOL 1 GRAM TABLETS TWICE DAILY
     Route: 048
     Dates: start: 201612

REACTIONS (1)
  - Product use complaint [Not Recovered/Not Resolved]
